FAERS Safety Report 23060550 (Version 3)
Quarter: 2023Q4

REPORT INFORMATION
  Report Type: Spontaneous
  Country: FR (occurrence: FR)
  Receive Date: 20231012
  Receipt Date: 20231213
  Transmission Date: 20240109
  Serious: Yes (Death, Hospitalization, Other)
  Sender: FDA-Public Use
  Company Number: FR-AMGEN-FRASP2023178412

PATIENT
  Age: 47 Year
  Sex: Male
  Weight: 61 kg

DRUGS (2)
  1. LUMAKRAS [Suspect]
     Active Substance: SOTORASIB
     Indication: Non-small cell lung cancer
     Dosage: 960 MILLIGRAM, QD (EIGHT TABLETS OF 120 MG) ONCE DAILY, AT THE SAME TIME EVERY DAY)
     Route: 048
     Dates: start: 20230424, end: 20230623
  2. LUMAKRAS [Suspect]
     Active Substance: SOTORASIB
     Dosage: 960 MILLIGRAM, QD (EIGHT TABLETS OF 120 MG) ONCE DAILY, AT THE SAME TIME EVERY DAY)
     Route: 048
     Dates: start: 20230720, end: 20230808

REACTIONS (4)
  - Hepatotoxicity [Unknown]
  - Non-small cell lung cancer [Fatal]
  - General physical health deterioration [Unknown]
  - Diarrhoea [Recovered/Resolved]

NARRATIVE: CASE EVENT DATE: 20230623
